FAERS Safety Report 17652892 (Version 1)
Quarter: 2020Q2

REPORT INFORMATION
  Report Type: Spontaneous
  Country: US (occurrence: US)
  Receive Date: 20200409
  Receipt Date: 20200409
  Transmission Date: 20200713
  Serious: Yes (Life-Threatening, Other)
  Sender: FDA-Public Use
  Company Number: US-BAYER-2020-056562

PATIENT
  Age: 49 Year
  Sex: Male

DRUGS (4)
  1. ACETYLSALICYLIC ACID [Suspect]
     Active Substance: ASPIRIN
     Indication: CARDIAC ARREST
  2. HEPARIN [Suspect]
     Active Substance: HEPARIN SODIUM
  3. TICAGRELOR. [Suspect]
     Active Substance: TICAGRELOR
  4. TIROFIBAN [Suspect]
     Active Substance: TIROFIBAN

REACTIONS (5)
  - Pulmonary haemorrhage [None]
  - Labelled drug-drug interaction medication error [None]
  - Cardiac arrest [None]
  - Product use in unapproved indication [None]
  - Off label use [None]
